FAERS Safety Report 5729057-2 (Version None)
Quarter: 2008Q2

REPORT INFORMATION
  Report Type: 
  Country: None (occurrence: None)
  Receive Date: 20080506
  Receipt Date: 20080131
  Transmission Date: 20081010
  Serious: No
  Sender: FDA-Public Use
  Company Number: US-BAYER-200813521NA

PATIENT
  Age: 40 Year
  Sex: Female
  Weight: 63 kg

DRUGS (3)
  1. MAGNEVIST [Suspect]
     Indication: NUCLEAR MAGNETIC RESONANCE IMAGING
     Dosage: TOTAL DAILY DOSE: 13 ML  UNIT DOSE: 100 ML
     Route: 042
     Dates: start: 20071230, end: 20071230
  2. MAGNEVIST [Suspect]
     Route: 042
     Dates: start: 20080106, end: 20080106
  3. PREMEDICATION [Concomitant]
     Indication: ANAPHYLAXIS PROPHYLAXIS
     Dates: start: 20080106

REACTIONS (3)
  - COUGH [None]
  - DRY THROAT [None]
  - URTICARIA [None]
